FAERS Safety Report 9303692 (Version 2)
Quarter: 2014Q3

REPORT INFORMATION
  Report Type: Spontaneous
  Country: US (occurrence: US)
  Receive Date: 20130522
  Receipt Date: 20140820
  Transmission Date: 20150326
  Serious: Yes (Hospitalization)
  Sender: FDA-Public Use
  Company Number: US-GLAXOSMITHKLINE-A0688717A

PATIENT
  Sex: Male
  Weight: 97.7 kg

DRUGS (11)
  1. NOVOLIN [Concomitant]
     Active Substance: INSULIN HUMAN
  2. VICODIN [Concomitant]
     Active Substance: ACETAMINOPHEN\HYDROCODONE BITARTRATE
     Dates: start: 200408
  3. AVANDIA [Suspect]
     Active Substance: ROSIGLITAZONE MALEATE
     Indication: TYPE 2 DIABETES MELLITUS
     Dosage: 8MG PER DAY
     Route: 048
     Dates: start: 20040607, end: 20050708
  4. VIAGRA [Concomitant]
     Active Substance: SILDENAFIL CITRATE
  5. AVAPRO [Concomitant]
     Active Substance: IRBESARTAN
  6. METOPROLOL [Concomitant]
     Active Substance: METOPROLOL
  7. ROSIGLITAZONE MALEATE. [Suspect]
     Active Substance: ROSIGLITAZONE MALEATE
     Indication: DIABETES MELLITUS
     Route: 048
     Dates: start: 200309, end: 200506
  8. ACARBOSE. [Concomitant]
     Active Substance: ACARBOSE
     Dates: start: 20041206, end: 20041207
  9. HCTZ [Concomitant]
     Active Substance: HYDROCHLOROTHIAZIDE
  10. NIACIN. [Concomitant]
     Active Substance: NIACIN
  11. AVALIDE [Concomitant]
     Active Substance: HYDROCHLOROTHIAZIDE\IRBESARTAN

REACTIONS (4)
  - Pain [Unknown]
  - Myocardial infarction [Unknown]
  - Coronary artery disease [Unknown]
  - Injury [Unknown]
